FAERS Safety Report 10420048 (Version 1)
Quarter: 2014Q3

REPORT INFORMATION
  Report Type: Spontaneous
  Country: US (occurrence: US)
  Receive Date: 20140829
  Receipt Date: 20140829
  Transmission Date: 20150326
  Serious: Yes (Other)
  Sender: FDA-Public Use
  Company Number: US-ASTRAZENECA-2014SE62649

PATIENT
  Age: 23085 Day
  Sex: Female
  Weight: 55.4 kg

DRUGS (20)
  1. PRILOSEC [Suspect]
     Active Substance: OMEPRAZOLE MAGNESIUM
     Indication: GASTROOESOPHAGEAL REFLUX DISEASE
     Route: 048
     Dates: start: 20140619
  2. FEMARA [Concomitant]
     Active Substance: LETROZOLE
     Dates: start: 2008
  3. LEXAPRO [Concomitant]
     Active Substance: ESCITALOPRAM OXALATE
     Indication: DEPRESSION
     Dosage: DAILY
  4. COREG [Concomitant]
     Active Substance: CARVEDILOL
     Indication: HYPERTENSION
  5. DURAGESIC [Concomitant]
     Active Substance: FENTANYL
     Dosage: 25 MCG/HR,CHANGE 72 HOURS
     Route: 062
     Dates: start: 20140619
  6. INLYTA [Concomitant]
     Active Substance: AXITINIB
     Dates: start: 20130629
  7. NORVASC [Concomitant]
     Active Substance: AMLODIPINE BESYLATE
     Indication: HYPERTENSION
  8. INLYTA [Concomitant]
     Active Substance: AXITINIB
     Dates: start: 20130910, end: 20140304
  9. IMODIUM [Concomitant]
     Active Substance: LOPERAMIDE HYDROCHLORIDE
     Indication: DIARRHOEA
     Dosage: AS REQUIRED
  10. LEVOTHYROXINE [Concomitant]
     Active Substance: LEVOTHYROXINE
     Route: 048
  11. AFINITOR [Concomitant]
     Active Substance: EVEROLIMUS
     Dates: start: 20120427, end: 20130627
  12. AFINITOR [Concomitant]
     Active Substance: EVEROLIMUS
     Dosage: INCREASED TO 10 MG/D
  13. INLYTA [Concomitant]
     Active Substance: AXITINIB
     Dates: start: 20130729, end: 20130820
  14. INLYTA [Concomitant]
     Active Substance: AXITINIB
     Dates: start: 20140320, end: 201405
  15. LORAZEPAM. [Concomitant]
     Active Substance: LORAZEPAM
     Indication: DEPRESSION
     Dosage: AS REQUIRED
  16. TAMOXIFEN [Suspect]
     Active Substance: TAMOXIFEN
     Route: 048
     Dates: start: 200705, end: 200808
  17. SUTENT [Suspect]
     Active Substance: SUNITINIB MALATE
     Indication: ADENOCARCINOMA
     Dosage: 50 MG DAILY, TAKES FOR 4 WEEKS OFF FOR 2 WEEKS, REPEAT EVERY 6 WEEKS
     Route: 048
  18. SUTENT [Suspect]
     Active Substance: SUNITINIB MALATE
     Indication: ADENOCARCINOMA
     Dosage: 50 MG DAILY, TAKES FOR 3 WEEKS OFF FOR 2 WEEKS
     Route: 048
     Dates: start: 20140606, end: 20140627
  19. GEMZAR/CARBOPLATIN [Concomitant]
     Dosage: ONE CYCLE
     Dates: start: 20120210
  20. VOTRIENT [Concomitant]
     Active Substance: PAZOPANIB HYDROCHLORIDE
     Dates: start: 20120309, end: 20120320

REACTIONS (46)
  - Scar [Unknown]
  - Spinal osteoarthritis [Unknown]
  - Arthropathy [Unknown]
  - Adrenal haemorrhage [Unknown]
  - Flank pain [Unknown]
  - Musculoskeletal pain [Unknown]
  - Depression [Unknown]
  - Carbohydrate antigen 19-9 increased [Unknown]
  - Malaise [Unknown]
  - Diarrhoea [Unknown]
  - Retroperitoneal cancer [Unknown]
  - Hydronephrosis [Unknown]
  - Drug intolerance [Unknown]
  - Protein urine present [Unknown]
  - Lumbar spinal stenosis [Unknown]
  - Tendon rupture [Unknown]
  - Renal cell carcinoma [Unknown]
  - Rectal haemorrhage [Unknown]
  - Metastases to spine [Unknown]
  - Extradural neoplasm [Unknown]
  - Fatigue [Unknown]
  - Quality of life decreased [Unknown]
  - Asthenia [Unknown]
  - Yellow skin [Unknown]
  - Nipple disorder [Unknown]
  - Weight increased [Unknown]
  - Hypothyroidism [Unknown]
  - Vomiting [Not Recovered/Not Resolved]
  - Gait disturbance [Unknown]
  - Dystrophic calcification [Unknown]
  - Malignant neoplasm of unknown primary site [Unknown]
  - Mammogram abnormal [Unknown]
  - Intervertebral disc protrusion [Unknown]
  - Nausea [Not Recovered/Not Resolved]
  - Fat necrosis [Unknown]
  - Swelling face [Unknown]
  - Breast fibrosis [Unknown]
  - Decreased appetite [Unknown]
  - Breast mass [Unknown]
  - Metastases to adrenals [Unknown]
  - Eye swelling [Unknown]
  - Hot flush [Unknown]
  - Metastases to liver [Unknown]
  - Schwannoma [Unknown]
  - Abdominal pain upper [Unknown]
  - Lymphadenopathy [Unknown]

NARRATIVE: CASE EVENT DATE: 20120203
